FAERS Safety Report 13462210 (Version 3)
Quarter: 2017Q3

REPORT INFORMATION
  Report Type: Spontaneous
  Country: US (occurrence: US)
  Receive Date: 20170420
  Receipt Date: 20170829
  Transmission Date: 20171127
  Serious: No
  Sender: FDA-Public Use
  Company Number: US-INCYTE CORPORATION-2017IN002800

PATIENT

DRUGS (28)
  1. IBUPROFEN. [Concomitant]
     Active Substance: IBUPROFEN
     Indication: PRODUCT USED FOR UNKNOWN INDICATION
  2. VITAMIN B COMPLEX WITH C [Concomitant]
     Active Substance: ASCORBIC ACID\CALCIUM PANTOTHENATE\CYANOCOBALAMIN\NIACINAMIDE\PYRIDOXINE HYDROCHLORIDE\RIBOFLAVIN\THIAMINE MONONITRATE
     Indication: PRODUCT USED FOR UNKNOWN INDICATION
  3. MULTIVITAMIN                       /07504101/ [Concomitant]
     Active Substance: VITAMINS
     Indication: PRODUCT USED FOR UNKNOWN INDICATION
  4. STOOL SOFTENER (DOCUSATE) [Concomitant]
     Active Substance: DOCUSATE
     Indication: PRODUCT USED FOR UNKNOWN INDICATION
  5. SIMVASTATIN. [Concomitant]
     Active Substance: SIMVASTATIN
     Indication: PRODUCT USED FOR UNKNOWN INDICATION
  6. FINASTERIDE. [Concomitant]
     Active Substance: FINASTERIDE
     Indication: PRODUCT USED FOR UNKNOWN INDICATION
  7. LOSARTAN. [Concomitant]
     Active Substance: LOSARTAN
     Indication: PRODUCT USED FOR UNKNOWN INDICATION
  8. PROPAFENONE. [Concomitant]
     Active Substance: PROPAFENONE
     Indication: PRODUCT USED FOR UNKNOWN INDICATION
  9. DULOXETINE. [Concomitant]
     Active Substance: DULOXETINE
     Indication: PRODUCT USED FOR UNKNOWN INDICATION
  10. JAKAFI [Suspect]
     Active Substance: RUXOLITINIB
     Indication: POLYCYTHAEMIA VERA
     Dosage: 20 MG, QAM AND 10 MG QODPM
     Route: 048
     Dates: start: 201608
  11. JAKAFI [Suspect]
     Active Substance: RUXOLITINIB
     Dosage: 20 MG, QAM
     Route: 048
     Dates: start: 2017, end: 201708
  12. FOLIC ACID. [Concomitant]
     Active Substance: FOLIC ACID
     Indication: PRODUCT USED FOR UNKNOWN INDICATION
  13. XARELTO [Concomitant]
     Active Substance: RIVAROXABAN
     Indication: PRODUCT USED FOR UNKNOWN INDICATION
  14. JAKAFI [Suspect]
     Active Substance: RUXOLITINIB
     Dosage: 20 MG BID
     Route: 048
     Dates: start: 201708
  15. JAKAFI [Suspect]
     Active Substance: RUXOLITINIB
     Dosage: 20 MG BID
     Route: 048
     Dates: start: 201708
  16. JAKAFI [Suspect]
     Active Substance: RUXOLITINIB
     Dosage: UNK
  17. PROAIR HFA [Concomitant]
     Active Substance: ALBUTEROL SULFATE
     Indication: PRODUCT USED FOR UNKNOWN INDICATION
  18. LORATADINE. [Concomitant]
     Active Substance: LORATADINE
     Indication: PRODUCT USED FOR UNKNOWN INDICATION
  19. JAKAFI [Suspect]
     Active Substance: RUXOLITINIB
     Indication: MYELOFIBROSIS
     Dosage: 20 MG, QAM AND 10 MG QODPM
     Route: 048
     Dates: start: 2017, end: 201708
  20. LYRICA [Concomitant]
     Active Substance: PREGABALIN
     Indication: PRODUCT USED FOR UNKNOWN INDICATION
  21. VITAMIN D3 [Concomitant]
     Active Substance: CHOLECALCIFEROL
     Indication: PRODUCT USED FOR UNKNOWN INDICATION
  22. ASPIRIN                            /00002701/ [Concomitant]
     Active Substance: ASPIRIN
     Indication: PRODUCT USED FOR UNKNOWN INDICATION
  23. LEVOTHYROXINE. [Concomitant]
     Active Substance: LEVOTHYROXINE
     Indication: PRODUCT USED FOR UNKNOWN INDICATION
  24. SINGULAIR [Concomitant]
     Active Substance: MONTELUKAST SODIUM
     Indication: PRODUCT USED FOR UNKNOWN INDICATION
  25. RANITIDINE. [Concomitant]
     Active Substance: RANITIDINE
     Indication: PRODUCT USED FOR UNKNOWN INDICATION
  26. PROFILNINE [Concomitant]
     Active Substance: FACTOR IX COMPLEX
     Indication: PRODUCT USED FOR UNKNOWN INDICATION
  27. HYDROCHLOROTHIAZIDE W/POTASSIUM CHLORIDE [Concomitant]
     Indication: PRODUCT USED FOR UNKNOWN INDICATION
  28. ZAFIRLUKAST. [Concomitant]
     Active Substance: ZAFIRLUKAST

REACTIONS (5)
  - Skin ulcer [Unknown]
  - Peripheral swelling [Recovering/Resolving]
  - Fluid retention [Unknown]
  - Blood count abnormal [Unknown]
  - Weight increased [Unknown]

NARRATIVE: CASE EVENT DATE: 2017
